FAERS Safety Report 12722110 (Version 4)
Quarter: 2018Q2

REPORT INFORMATION
  Report Type: Report from Study
  Country: JP (occurrence: JP)
  Receive Date: 20160907
  Receipt Date: 20180613
  Transmission Date: 20180711
  Serious: Yes (Death, Life-Threatening)
  Sender: FDA-Public Use
  Company Number: JP-EISAI MEDICAL RESEARCH-EC-2016-020077

PATIENT
  Age: 80 Year
  Sex: Female
  Weight: 35 kg

DRUGS (8)
  1. LOXOPROFEN [Concomitant]
     Active Substance: LOXOPROFEN
  2. HOKUNALIN [Concomitant]
     Active Substance: TULOBUTEROL
  3. MEROPEN [Concomitant]
     Active Substance: MEROPENEM
  4. OLMETEC [Concomitant]
     Active Substance: OLMESARTAN MEDOXOMIL
  5. NEXIUM [Concomitant]
     Active Substance: ESOMEPRAZOLE MAGNESIUM
  6. MAGMITT [Concomitant]
     Active Substance: MAGNESIUM OXIDE
  7. ERIBULIN [Suspect]
     Active Substance: ERIBULIN
     Indication: INFLAMMATORY CARCINOMA OF THE BREAST
     Route: 041
     Dates: start: 20160819, end: 20160826
  8. LEVOTHYROXINE. [Concomitant]
     Active Substance: LEVOTHYROXINE

REACTIONS (3)
  - Neutropenia [Fatal]
  - Acute respiratory distress syndrome [Fatal]
  - Death [Fatal]

NARRATIVE: CASE EVENT DATE: 20160831
